FAERS Safety Report 12503628 (Version 2)
Quarter: 2016Q3

REPORT INFORMATION
  Report Type: Spontaneous
  Country: US (occurrence: US)
  Receive Date: 20160628
  Receipt Date: 20160708
  Transmission Date: 20161109
  Serious: Yes (Hospitalization, Other)
  Sender: FDA-Public Use
  Company Number: US-ELI_LILLY_AND_COMPANY-US201606006510

PATIENT
  Age: 55 Year
  Sex: Female
  Weight: 96 kg

DRUGS (15)
  1. ADCIRCA [Suspect]
     Active Substance: TADALAFIL
     Indication: PRODUCT USED FOR UNKNOWN INDICATION
     Dosage: UNK, UNKNOWN
     Route: 065
  2. METOPROLOL. [Concomitant]
     Active Substance: METOPROLOL
  3. AMBRISENTAN [Suspect]
     Active Substance: AMBRISENTAN
     Indication: PULMONARY HYPERTENSION
     Dosage: 5 MG, QD
     Route: 048
     Dates: start: 20160310
  4. HYDROCODONE [Concomitant]
     Active Substance: HYDROCODONE
  5. LASIX [Concomitant]
     Active Substance: FUROSEMIDE
  6. OXYGEN. [Concomitant]
     Active Substance: OXYGEN
  7. AMLODIPINE [Concomitant]
     Active Substance: AMLODIPINE BESYLATE
  8. GABAPENTIN. [Concomitant]
     Active Substance: GABAPENTIN
  9. LORATADINE. [Concomitant]
     Active Substance: LORATADINE
  10. SILDENAFIL. [Suspect]
     Active Substance: SILDENAFIL
     Indication: PRODUCT USED FOR UNKNOWN INDICATION
     Dosage: UNK, UNKNOWN
     Route: 065
     Dates: start: 20160328
  11. TRAMADOL. [Concomitant]
     Active Substance: TRAMADOL
  12. AMBRISENTAN [Suspect]
     Active Substance: AMBRISENTAN
     Indication: SCLERODERMA
     Dosage: 10 MG, QD
     Route: 065
  13. PROAIR HFA [Concomitant]
     Active Substance: ALBUTEROL SULFATE
  14. RANITIDINE. [Concomitant]
     Active Substance: RANITIDINE
  15. TYLENOL [Concomitant]
     Active Substance: ACETAMINOPHEN

REACTIONS (8)
  - Malaise [Not Recovered/Not Resolved]
  - Pulmonary oedema [Unknown]
  - Musculoskeletal chest pain [Unknown]
  - Dyspnoea exertional [Not Recovered/Not Resolved]
  - Fluid overload [Recovering/Resolving]
  - Dyspnoea [Recovered/Resolved]
  - Fatigue [Not Recovered/Not Resolved]
  - Oedema peripheral [Not Recovered/Not Resolved]

NARRATIVE: CASE EVENT DATE: 20160329
